FAERS Safety Report 10196037 (Version 2)
Quarter: 2014Q2

REPORT INFORMATION
  Report Type: Spontaneous
  Country: FR (occurrence: None)
  Receive Date: 20140522
  Receipt Date: 20140605
  Transmission Date: 20141212
  Serious: Yes (Hospitalization, Other)
  Sender: FDA-Public Use
  Company Number: 2014-001404

PATIENT
  Age: 83 Year
  Sex: Female

DRUGS (7)
  1. ACTONEL (RISEDRONATE SODIUM) TABLET [Suspect]
     Route: 048
     Dates: end: 20140414
  2. AUGMENTIN [Suspect]
     Indication: ERYSIPELAS
     Route: 048
     Dates: start: 20140331, end: 20140414
  3. SPIRONOLACTONE (SPIRONOLACTONE) [Suspect]
     Route: 048
  4. ALTIZIDE [Suspect]
     Route: 048
  5. CALCIDOSE (CALCIUM CARBONATE) [Concomitant]
  6. DIOSMECTAL (SMECTITE) [Concomitant]
  7. PARACETAMOL (PARACETAMOL) [Concomitant]

REACTIONS (2)
  - Hepatitis cholestatic [None]
  - Epstein-Barr virus test positive [None]
